FAERS Safety Report 21903801 (Version 1)
Quarter: 2023Q1

REPORT INFORMATION
  Report Type: Spontaneous
  Country: IT (occurrence: None)
  Receive Date: 20230124
  Receipt Date: 20230124
  Transmission Date: 20230418
  Serious: Yes (Hospitalization)
  Sender: FDA-Public Use
  Company Number: 2023A010962

PATIENT
  Age: 57 Year
  Sex: Male

DRUGS (7)
  1. TICAGRELOR [Suspect]
     Active Substance: TICAGRELOR
     Indication: Acute myocardial infarction
     Dosage: DOSAGE: 180 UNITS OF MEASUREMENT: MILLIGRAMS FREQUENCY OF ADMINISTRATION: DAILY VIA
     Route: 048
     Dates: start: 20210922, end: 20220513
  2. ASPIRIN [Suspect]
     Active Substance: ASPIRIN
     Dosage: DOSAGE: 100 UNITS OF MEASUREMENT: MILLIGRAMS FREQUENCY OF ADMINISTRATION: DAILY VIA ADMINISTRATIO...
     Route: 048
     Dates: start: 20210922, end: 20220513
  3. ROSUVASTATIN [Concomitant]
     Active Substance: ROSUVASTATIN
  4. PANTOPRAZOLE [Concomitant]
     Active Substance: PANTOPRAZOLE
     Dosage: DOSAGE: 20 UNITS OF MEASUREMENT: MILLIGRAMS
  5. EZETIMIBE [Concomitant]
     Active Substance: EZETIMIBE
  6. BISOPROLOL FUMARATE [Concomitant]
     Active Substance: BISOPROLOL FUMARATE
     Dosage: DOSAGE: 2.5 UNITS OF MEASUREMENT: MILLIGRAMS2.5MG UNKNOWN
  7. RAMIPRIL [Concomitant]
     Active Substance: RAMIPRIL
     Dosage: DOSAGE: 2.5 UNITS OF MEASUREMENT: MILLIGRAMS

REACTIONS (2)
  - Abdominal pain upper [Recovering/Resolving]
  - Haematemesis [Recovering/Resolving]

NARRATIVE: CASE EVENT DATE: 20220501
